FAERS Safety Report 23117189 (Version 2)
Quarter: 2023Q4

REPORT INFORMATION
  Report Type: Other
  Country: US (occurrence: None)
  Receive Date: 20231027
  Receipt Date: 20231030
  Transmission Date: 20240109
  Serious: Yes (Other)
  Sender: FDA-Public Use
  Company Number: US-ROCHE-3443974

PATIENT
  Age: 63 Year
  Sex: Male

DRUGS (1)
  1. ESBRIET [Suspect]
     Active Substance: PIRFENIDONE
     Indication: Idiopathic pulmonary fibrosis
     Dosage: TAKE 2 TABLETS (534 MG TOTAL) BY MOUTH 3 (THREE) TIMES DAILY
     Route: 048

REACTIONS (2)
  - Pancreatitis [Unknown]
  - Arthritis [Unknown]
